FAERS Safety Report 9936704 (Version 2)
Quarter: 2014Q1

REPORT INFORMATION
  Report Type: Spontaneous
  Country: US (occurrence: US)
  Receive Date: 20140228
  Receipt Date: 20140228
  Transmission Date: 20141002
  Serious: Yes (Other)
  Sender: FDA-Public Use
  Company Number: US-AMGEN-USASP2013088123

PATIENT
  Age: 50 Year
  Sex: Male
  Weight: 126.98 kg

DRUGS (1)
  1. ENBREL [Suspect]
     Indication: RHEUMATOID ARTHRITIS
     Dosage: 50 MG, QWK
     Route: 065
     Dates: start: 201311

REACTIONS (3)
  - Lower respiratory tract infection [Not Recovered/Not Resolved]
  - Upper respiratory tract infection [Unknown]
  - Sinus congestion [Not Recovered/Not Resolved]
